FAERS Safety Report 7103528-9 (Version None)
Quarter: 2010Q4

REPORT INFORMATION
  Report Type: 
  Country: None (occurrence: None)
  Receive Date: 20101115
  Receipt Date: 20090922
  Transmission Date: 20110411
  Serious: No
  Sender: FDA-Public Use
  Company Number: US-KINGPHARMUSA00001-K200901172

PATIENT
  Sex: Female
  Weight: 67.12 kg

DRUGS (7)
  1. LEVOXYL [Suspect]
     Indication: THYROID CANCER
     Dosage: 125 MCG, QD
     Route: 048
     Dates: start: 20080101, end: 20090501
  2. LEVOXYL [Suspect]
     Dosage: 150 MCG, QD
     Route: 048
     Dates: start: 20090501
  3. ACIPHEX [Concomitant]
     Indication: GASTROOESOPHAGEAL REFLUX DISEASE
     Dosage: UNK
  4. AMLODIPINE [Concomitant]
     Indication: HYPERTENSION
     Dosage: UNK
  5. ASPIRIN [Concomitant]
     Indication: PAIN
     Dosage: UNK
  6. ADVIL [Concomitant]
     Indication: PAIN
     Dosage: UNK
  7. ADVAIR DISKUS 100/50 [Concomitant]
     Indication: ASTHMA
     Dosage: 1 DF, QD

REACTIONS (5)
  - ARTHRALGIA [None]
  - BLOOD PRESSURE INCREASED [None]
  - JOINT INJURY [None]
  - POOR QUALITY SLEEP [None]
  - WEIGHT DECREASED [None]
